FAERS Safety Report 7437535-3 (Version None)
Quarter: 2011Q2

REPORT INFORMATION
  Report Type: 
  Country: None (occurrence: None)
  Receive Date: 20110426
  Receipt Date: 20110421
  Transmission Date: 20111010
  Serious: Yes (Other)
  Sender: FDA-Public Use
  Company Number: GB-B.I. PHARMACEUTICALS,INC./RIDGEFIELD-2010-UK-00619UK

PATIENT
  Age: 42 Year
  Sex: Female

DRUGS (2)
  1. MICARDIS [Suspect]
     Indication: BLOOD PRESSURE
     Dosage: 80 MG
     Route: 048
     Dates: start: 20100526, end: 20100629
  2. TRANDATE [Concomitant]
     Dosage: 100 MG

REACTIONS (2)
  - ABORTION SPONTANEOUS [None]
  - DRUG EXPOSURE DURING PREGNANCY [None]
